FAERS Safety Report 6412422-8 (Version None)
Quarter: 2009Q4

REPORT INFORMATION
  Report Type: 
  Country: None (occurrence: None)
  Receive Date: 20091023
  Receipt Date: 20091016
  Transmission Date: 20100525
  Serious: Yes (Other)
  Sender: FDA-Public Use
  Company Number: US-JNJFOC-20091006996

PATIENT
  Age: 68 Year
  Sex: Female
  Weight: 68.95 kg

DRUGS (7)
  1. ELMIRON [Suspect]
     Indication: CYSTITIS INTERSTITIAL
     Dosage: ONE CAPSULE IN THE MORNING, TWO IN THE NIGHT
     Route: 048
     Dates: start: 20090401, end: 20091001
  2. HYDROXYZINE [Suspect]
     Indication: CYSTITIS INTERSTITIAL
     Route: 048
     Dates: start: 20090401, end: 20091001
  3. NITROFURANTOIN [Suspect]
     Indication: CYSTITIS INTERSTITIAL
     Route: 048
     Dates: start: 20090401, end: 20091001
  4. GABAPENTIN [Suspect]
     Indication: CYSTITIS INTERSTITIAL
     Route: 048
     Dates: start: 20090401, end: 20091001
  5. PROSED DS [Suspect]
     Indication: CYSTITIS INTERSTITIAL
     Route: 048
     Dates: start: 20090401, end: 20091001
  6. CIPRO [Concomitant]
     Indication: CYSTITIS
     Route: 048
  7. SYNTHROID [Concomitant]
     Indication: HYPOTHYROIDISM
     Route: 048

REACTIONS (3)
  - DIZZINESS [None]
  - EYE HAEMORRHAGE [None]
  - SOMNOLENCE [None]
